FAERS Safety Report 4962945-3 (Version None)
Quarter: 2006Q1

REPORT INFORMATION
  Report Type: 
  Country: None (occurrence: None)
  Receive Date: 20060331
  Receipt Date: 20060314
  Transmission Date: 20060701
  Serious: Yes (Hospitalization)
  Sender: FDA-Public Use
  Company Number: 34256

PATIENT
  Age: 82 Year
  Sex: Female

DRUGS (7)
  1. AZOPT [Suspect]
     Dosage: OPHT
     Route: 047
  2. NICARDIPINE HYDROCHLORIDE [Suspect]
     Dosage: PO
     Route: 048
  3. ASPEGIC CODEINE POWDER [Suspect]
     Dosage: PO
     Route: 048
  4. ALIMEMAZINE TARTRATE [Suspect]
     Dosage: PO
     Route: 048
  5. XALACOM [Suspect]
     Dosage: OPHT
     Route: 047
  6. ALPHAGAN [Suspect]
     Dosage: OPHT
     Route: 047
  7. BUSPIRONE HCL [Suspect]
     Dosage: PO
     Route: 048
     Dates: start: 20051101

REACTIONS (2)
  - AGRANULOCYTOSIS [None]
  - PYREXIA [None]
